FAERS Safety Report 10480601 (Version 1)
Quarter: 2014Q3

REPORT INFORMATION
  Report Type: Spontaneous
  Country: US (occurrence: None)
  Receive Date: 20140925
  Receipt Date: 20140925
  Transmission Date: 20150326
  Serious: Yes (Hospitalization, Other)
  Sender: FDA-Public Use
  Company Number: 2014US003714

PATIENT
  Age: 61 Year
  Sex: Female
  Weight: 91.2 kg

DRUGS (2)
  1. SENOKOT(SENNOSIDE A+B [Concomitant]
  2. PONATINIB (AP24534) TABLET [Suspect]
     Active Substance: PONATINIB
     Indication: CHRONIC MYELOID LEUKAEMIA
     Route: 048
     Dates: start: 20131218, end: 20140119

REACTIONS (5)
  - Carotid artery stenosis [None]
  - Muscle spasms [None]
  - VIIth nerve paralysis [None]
  - Speech disorder [None]
  - Ischaemic stroke [None]

NARRATIVE: CASE EVENT DATE: 20140119
